FAERS Safety Report 20985418 (Version 1)
Quarter: 2022Q2

REPORT INFORMATION
  Report Type: Spontaneous
  Country: CN (occurrence: CN)
  Receive Date: 20220621
  Receipt Date: 20220621
  Transmission Date: 20220720
  Serious: Yes (Hospitalization)
  Sender: FDA-Public Use
  Company Number: CN-ABBOTT-2022A-1349982

PATIENT
  Age: 59 Year
  Sex: Female
  Weight: 55 kg

DRUGS (2)
  1. FENOFIBRATE [Suspect]
     Active Substance: FENOFIBRATE
     Indication: Cerebral infarction
     Route: 048
     Dates: start: 20220527, end: 20220602
  2. ATORVASTATIN CALCIUM [Suspect]
     Active Substance: ATORVASTATIN CALCIUM
     Indication: Cerebral infarction
     Route: 048
     Dates: start: 20220525, end: 20220602

REACTIONS (1)
  - Drug-induced liver injury [Recovering/Resolving]

NARRATIVE: CASE EVENT DATE: 20220601
